FAERS Safety Report 16551861 (Version 2)
Quarter: 2019Q3

REPORT INFORMATION
  Report Type: Report from Study
  Country: US (occurrence: US)
  Receive Date: 20190710
  Receipt Date: 20190729
  Transmission Date: 20191004
  Serious: Yes (Hospitalization, Other)
  Sender: FDA-Public Use
  Company Number: US-MYLANLABS-2019M1062271

PATIENT
  Age: 63 Year
  Sex: Male
  Weight: 70.4 kg

DRUGS (2)
  1. PREDNISONE. [Suspect]
     Active Substance: PREDNISONE
     Indication: ACUTE GRAFT VERSUS HOST DISEASE
     Dosage: 20 MILLIGRAM, BID
     Route: 048
     Dates: start: 20171009
  2. RITUXIMAB. [Suspect]
     Active Substance: RITUXIMAB
     Indication: POST TRANSPLANT LYMPHOPROLIFERATIVE DISORDER
     Dosage: 700 MILLIGRAM, QD
     Route: 042
     Dates: start: 20171022, end: 20171115

REACTIONS (2)
  - Post transplant lymphoproliferative disorder [Unknown]
  - Febrile neutropenia [Recovered/Resolved]

NARRATIVE: CASE EVENT DATE: 20171109
